FAERS Safety Report 8588642-3 (Version None)
Quarter: 2012Q3

REPORT INFORMATION
  Report Type: 
  Country: None (occurrence: None)
  Receive Date: 20120813
  Receipt Date: 20120806
  Transmission Date: 20120928
  Serious: Yes (Hospitalization, Other)
  Sender: FDA-Public Use
  Company Number: PHEH2012US006553

PATIENT
  Sex: Female

DRUGS (2)
  1. GLEEVEC [Suspect]
     Dosage: 600 MG, DAILY
     Route: 048
     Dates: start: 20110620
  2. GLEEVEC [Suspect]
     Indication: CHRONIC MYELOID LEUKAEMIA
     Dosage: 600 MG, QD
     Route: 048
     Dates: start: 20070808

REACTIONS (10)
  - FEMUR FRACTURE [None]
  - EYE SWELLING [None]
  - GASTROINTESTINAL TRACT IRRITATION [None]
  - FLUID RETENTION [None]
  - MALAISE [None]
  - ABDOMINAL PAIN UPPER [None]
  - CHOLELITHIASIS [None]
  - RENAL DISORDER [None]
  - DIARRHOEA [None]
  - NAUSEA [None]
